FAERS Safety Report 13759970 (Version 1)
Quarter: 2017Q3

REPORT INFORMATION
  Report Type: Spontaneous
  Country: PL (occurrence: PL)
  Receive Date: 20170717
  Receipt Date: 20170717
  Transmission Date: 20171127
  Serious: Yes (Other)
  Sender: FDA-Public Use
  Company Number: PL-GLENMARK PHARMACEUTICALS-2017GMK028172

PATIENT
  Age: 25 Year
  Sex: Female

DRUGS (1)
  1. FLUCONAZOLE. [Suspect]
     Active Substance: FLUCONAZOLE
     Indication: VULVOVAGINAL CANDIDIASIS
     Dosage: UNK, ONCE IN A MONTH
     Route: 048

REACTIONS (1)
  - Fixed eruption [Recovered/Resolved]
